FAERS Safety Report 9977433 (Version 1)
Quarter: 2014Q1

REPORT INFORMATION
  Report Type: Report from Study
  Country: US (occurrence: US)
  Receive Date: 20140306
  Receipt Date: 20140306
  Transmission Date: 20141002
  Serious: No
  Sender: FDA-Public Use
  Company Number: US-ABBVIE-13P-163-1169125-00

PATIENT
  Age: 44 Year
  Sex: Female
  Weight: 88.08 kg

DRUGS (11)
  1. HUMIRA [Suspect]
     Indication: PSORIATIC ARTHROPATHY
     Dates: start: 201212, end: 201307
  2. HUMIRA [Suspect]
     Dates: start: 201309
  3. PREMARIN [Concomitant]
     Indication: HORMONE REPLACEMENT THERAPY
  4. METHADONE [Concomitant]
     Indication: PAIN
  5. DOCUSATE SODIUM [Concomitant]
     Indication: CONSTIPATION PROPHYLAXIS
  6. RATADINE [Concomitant]
     Indication: IRRITABLE BOWEL SYNDROME
  7. XANAX [Concomitant]
     Indication: POST-TRAUMATIC STRESS DISORDER
  8. FLEXERIL [Concomitant]
     Indication: PAIN
  9. ALLERGY OTC [Concomitant]
     Indication: HYPERSENSITIVITY
  10. VITAMIN D [Concomitant]
     Indication: VITAMIN SUPPLEMENTATION
  11. LEUFLONIMIDE [Concomitant]
     Indication: PRODUCT USED FOR UNKNOWN INDICATION

REACTIONS (5)
  - Ingrowing nail [Recovered/Resolved]
  - Pustular psoriasis [Not Recovered/Not Resolved]
  - Limb discomfort [Recovered/Resolved]
  - Pain [Not Recovered/Not Resolved]
  - Psoriatic arthropathy [Not Recovered/Not Resolved]
